FAERS Safety Report 5746230-8 (Version None)
Quarter: 2008Q2

REPORT INFORMATION
  Report Type: 
  Country: None (occurrence: None)
  Receive Date: 20080522
  Receipt Date: 20080513
  Transmission Date: 20081010
  Serious: Yes (Other)
  Sender: FDA-Public Use
  Company Number: US-WYE-H04082508

PATIENT
  Sex: Male

DRUGS (1)
  1. ROBITUSSIN DM [Suspect]
     Indication: DRUG ABUSE
     Dosage: UNKNOWN
     Route: 048

REACTIONS (2)
  - DRUG ABUSE [None]
  - OVERDOSE [None]
